FAERS Safety Report 21373135 (Version 1)
Quarter: 2022Q3

REPORT INFORMATION
  Report Type: Spontaneous
  Country: US (occurrence: US)
  Receive Date: 20220924
  Receipt Date: 20220924
  Transmission Date: 20221027
  Serious: No
  Sender: FDA-Public Use
  Company Number: US-CTI BIOPHARMA-2022US02867

PATIENT
  Age: 62 Year
  Sex: Female

DRUGS (1)
  1. VONJO [Suspect]
     Active Substance: PACRITINIB
     Indication: Myelofibrosis
     Dosage: 200 MILLIGRAM, BID
     Route: 048
     Dates: start: 20220508

REACTIONS (4)
  - Platelet count decreased [Unknown]
  - Product dose omission issue [Unknown]
  - Transfusion [Unknown]
  - Full blood count decreased [Unknown]
